FAERS Safety Report 7261795-5 (Version None)
Quarter: 2011Q1

REPORT INFORMATION
  Report Type: 
  Country: None (occurrence: None)
  Receive Date: 20110130
  Receipt Date: 20101130
  Transmission Date: 20110831
  Serious: No
  Sender: FDA-Public Use
  Company Number: US-ABBOTT-10P-163-0688511-00

PATIENT
  Age: 63 Year
  Sex: Male

DRUGS (2)
  1. HUMIRA [Suspect]
     Indication: RHEUMATOID ARTHRITIS
     Dates: start: 20051101, end: 20101124
  2. MTX [Concomitant]
     Indication: RHEUMATOID ARTHRITIS

REACTIONS (2)
  - PRURITUS [None]
  - ERYTHEMA [None]
